FAERS Safety Report 15658074 (Version 1)
Quarter: 2018Q4

REPORT INFORMATION
  Report Type: Spontaneous
  Country: GR (occurrence: GR)
  Receive Date: 20181126
  Receipt Date: 20181126
  Transmission Date: 20190205
  Serious: Yes (Hospitalization)
  Sender: FDA-Public Use
  Company Number: GR-JNJFOC-20181120122

PATIENT
  Age: 6 Month

DRUGS (2)
  1. RAPAMYCIN [Suspect]
     Active Substance: SIROLIMUS
     Indication: INFLAMMATORY BOWEL DISEASE
     Route: 065
  2. INFLIXIMAB, RECOMBINANT [Suspect]
     Active Substance: INFLIXIMAB
     Indication: INFLAMMATORY BOWEL DISEASE
     Route: 042

REACTIONS (8)
  - Therapeutic response decreased [Recovered/Resolved]
  - Colitis [Unknown]
  - Off label use [Unknown]
  - Anaemia [Unknown]
  - Leukocytosis [Unknown]
  - Product use issue [Unknown]
  - Blood immunoglobulin G decreased [Unknown]
  - Hypoalbuminaemia [Recovered/Resolved]
